FAERS Safety Report 7120897-4 (Version None)
Quarter: 2010Q4

REPORT INFORMATION
  Report Type: 
  Country: None (occurrence: None)
  Receive Date: 20101124
  Receipt Date: 20101115
  Transmission Date: 20110411
  Serious: Yes (Hospitalization)
  Sender: FDA-Public Use
  Company Number: FR-JNJFOC-20101104842

PATIENT
  Age: 81 Year
  Sex: Male

DRUGS (11)
  1. TAVANIC [Suspect]
     Indication: LUNG DISORDER
     Route: 048
     Dates: start: 20100331, end: 20100405
  2. NITROGLYCERIN [Concomitant]
     Route: 065
  3. KARDEGIC [Concomitant]
     Route: 065
  4. TAHOR [Concomitant]
     Route: 065
  5. XATRAL [Concomitant]
     Route: 065
  6. PLAVIX [Concomitant]
     Route: 065
  7. BISOPROLOL FUMARATE [Concomitant]
     Route: 065
  8. AMLOR [Concomitant]
     Route: 065
  9. ESOMEPRAZOLE MAGNESIUM [Concomitant]
     Route: 065
  10. LASIX [Concomitant]
     Route: 065
  11. DOLIPRANE [Concomitant]
     Route: 065

REACTIONS (2)
  - EPILEPSY [None]
  - MYOCLONUS [None]
